FAERS Safety Report 8484258-8 (Version None)
Quarter: 2012Q3

REPORT INFORMATION
  Report Type: 
  Country: None (occurrence: None)
  Receive Date: 20120703
  Receipt Date: 20120614
  Transmission Date: 20120928
  Serious: No
  Sender: FDA-Public Use
  Company Number: US-JNJFOC-20120609102

PATIENT
  Age: 6 Decade
  Sex: Male

DRUGS (5)
  1. LAMICTAL [Concomitant]
     Route: 048
  2. LITHIUM CARBONATE [Concomitant]
     Route: 048
  3. SEROQUEL [Concomitant]
     Route: 048
  4. INVEGA SUSTENNA [Suspect]
     Indication: PRODUCT USED FOR UNKNOWN INDICATION
     Route: 030
  5. INVEGA SUSTENNA [Suspect]
     Route: 030

REACTIONS (2)
  - INAPPROPRIATE SCHEDULE OF DRUG ADMINISTRATION [None]
  - DRUG EFFECT DECREASED [None]
